FAERS Safety Report 4354039-5 (Version None)
Quarter: 2004Q2

REPORT INFORMATION
  Report Type: 
  Country: None (occurrence: None)
  Receive Date: 20040430
  Receipt Date: 20031208
  Transmission Date: 20050107
  Serious: Yes (Hospitalization)
  Sender: FDA-Public Use
  Company Number: RB-312-2003

PATIENT
  Age: 39 Year
  Sex: Male

DRUGS (3)
  1. BUPRENORPHINE HYDROCHLORIDE [Suspect]
     Indication: DRUG DEPENDENCE
     Dosage: 8 MG IV
     Route: 042
     Dates: start: 19970101, end: 20030601
  2. FLUNITRAZEPAM [Suspect]
     Dosage: PO
     Route: 048
     Dates: end: 20030530
  3. PAROXETINE HYDROCHLORIDE [Concomitant]

REACTIONS (24)
  - ABDOMINAL PAIN [None]
  - ACUTE RESPIRATORY DISTRESS SYNDROME [None]
  - ACUTE RESPIRATORY FAILURE [None]
  - ASTHENIA [None]
  - BACK PAIN [None]
  - BODY TEMPERATURE DECREASED [None]
  - BUNDLE BRANCH BLOCK RIGHT [None]
  - CARDIOGENIC SHOCK [None]
  - CARDIOMEGALY [None]
  - COR PULMONALE [None]
  - DYSPNOEA EXERTIONAL [None]
  - HAEMODIALYSIS [None]
  - HEPATIC FAILURE [None]
  - HEPATOMEGALY [None]
  - INTENTIONAL MISUSE [None]
  - LACTIC ACIDOSIS [None]
  - LIVER DISORDER [None]
  - METABOLIC ACIDOSIS [None]
  - OEDEMA PERIPHERAL [None]
  - PERICARDIAL EFFUSION [None]
  - PULMONARY ARTERIAL PRESSURE INCREASED [None]
  - RENAL FAILURE ACUTE [None]
  - RESPIRATORY FAILURE [None]
  - VENTRICULAR EXTRASYSTOLES [None]
